FAERS Safety Report 11213490 (Version 7)
Quarter: 2015Q4

REPORT INFORMATION
  Report Type: Report from Study
  Country: BR (occurrence: BR)
  Receive Date: 20150623
  Receipt Date: 20151118
  Transmission Date: 20160304
  Serious: Yes (Other)
  Sender: FDA-Public Use
  Company Number: PHHY2013BR127421

PATIENT
  Age: 17 Year
  Sex: Male
  Weight: 55 kg

DRUGS (2)
  1. GILENYA [Suspect]
     Active Substance: FINGOLIMOD HYDROCHLORIDE
     Indication: MULTIPLE SCLEROSIS
     Dosage: 0.5 MG, QW
     Route: 048
     Dates: start: 20131008
  2. GILENYA [Suspect]
     Active Substance: FINGOLIMOD HYDROCHLORIDE
     Dosage: 0.5 MG, QD
     Route: 048
     Dates: start: 201501

REACTIONS (13)
  - Abnormal behaviour [Recovered/Resolved]
  - Sensory loss [Recovered/Resolved]
  - Vision blurred [Unknown]
  - Seizure [Recovered/Resolved]
  - Alopecia [Recovering/Resolving]
  - Hypoaesthesia [Recovering/Resolving]
  - Prescribed underdose [Unknown]
  - Drug administered to patient of inappropriate age [Not Recovered/Not Resolved]
  - Visual impairment [Recovered/Resolved]
  - Off label use [Unknown]
  - Multiple sclerosis relapse [Recovered/Resolved]
  - Diplopia [Unknown]
  - Headache [Recovered/Resolved]

NARRATIVE: CASE EVENT DATE: 20140502
